FAERS Safety Report 8100659-1 (Version None)
Quarter: 2012Q1

REPORT INFORMATION
  Report Type: 
  Country: None (occurrence: None)
  Receive Date: 20120129
  Receipt Date: 20111114
  Transmission Date: 20120608
  Serious: No
  Sender: FDA-Public Use
  Company Number: US-ABBOTT-11P-163-0696241-00

PATIENT
  Sex: Female

DRUGS (11)
  1. HUMIRA [Suspect]
     Indication: PSORIATIC ARTHROPATHY
     Dates: start: 20101227
  2. CYMBALTA [Concomitant]
     Indication: FIBROMYALGIA
  3. TRAMADOL HCL [Concomitant]
     Indication: PAIN
  4. UNKNOWN FIBROMYALGIA MEDICATION [Concomitant]
     Indication: FIBROMYALGIA
  5. HUMIRA [Suspect]
     Indication: PSORIASIS
  6. BLOOD PRESSURE MEDICATION [Concomitant]
     Indication: BLOOD PRESSURE
  7. XANAX [Concomitant]
     Indication: ANXIETY
  8. HUMIRA [Suspect]
     Indication: RHEUMATOID ARTHRITIS
  9. CHOLESTEROL MEDICATION [Concomitant]
     Indication: BLOOD CHOLESTEROL
  10. THYROID MED [Concomitant]
     Indication: THYROID FUNCTION TEST ABNORMAL
  11. IBUPROFEN [Concomitant]
     Indication: INFLAMMATION

REACTIONS (8)
  - WRONG TECHNIQUE IN DRUG USAGE PROCESS [None]
  - MUSCULOSKELETAL STIFFNESS [None]
  - ARTHRALGIA [None]
  - INJECTION SITE HAEMORRHAGE [None]
  - PAIN [None]
  - DRUG INEFFECTIVE [None]
  - DRUG DOSE OMISSION [None]
  - INJECTION SITE PAIN [None]
